FAERS Safety Report 6775419-4 (Version None)
Quarter: 2010Q2

REPORT INFORMATION
  Report Type: 
  Country: None (occurrence: None)
  Receive Date: 20100617
  Receipt Date: 20100606
  Transmission Date: 20101027
  Serious: Yes (Hospitalization)
  Sender: FDA-Public Use
  Company Number: CA-ELI_LILLY_AND_COMPANY-CA201006002585

PATIENT
  Age: 69 Year
  Sex: Male

DRUGS (11)
  1. FORTEO [Suspect]
     Indication: OSTEOPOROSIS
     Dosage: 20 UG, DAILY (1/D)
     Route: 058
     Dates: start: 20091201
  2. IMURAN [Concomitant]
  3. CELLCEPT [Concomitant]
  4. MESTINON [Concomitant]
  5. TRAMADOL HCL [Concomitant]
  6. ASPIRIN [Concomitant]
     Dosage: 81 MG, UNK
  7. PREDNISONE [Concomitant]
     Dosage: 10 MG, UNK
  8. PERCOCET [Concomitant]
     Dosage: UNK, AS NEEDED
  9. TYLENOL (CAPLET) [Concomitant]
  10. VITAMIN C [Concomitant]
  11. VITAMIN D [Concomitant]
     Dosage: 1000 IU, UNK

REACTIONS (5)
  - BACK PAIN [None]
  - BLOOD URINE PRESENT [None]
  - NEPHROLITHIASIS [None]
  - PAIN [None]
  - URINARY SEDIMENT PRESENT [None]
